FAERS Safety Report 14981363 (Version 3)
Quarter: 2018Q2

REPORT INFORMATION
  Report Type: Spontaneous
  Country: US (occurrence: US)
  Receive Date: 20180606
  Receipt Date: 20180618
  Transmission Date: 20180711
  Serious: Yes (Other)
  Sender: FDA-Public Use
  Company Number: US-ALLERGAN-1828921US

PATIENT
  Age: 65 Year
  Sex: Female

DRUGS (6)
  1. LINZESS [Suspect]
     Active Substance: LINACLOTIDE
     Indication: INFREQUENT BOWEL MOVEMENTS
     Dosage: UNK
     Route: 048
  2. GLYCERIN. [Concomitant]
     Active Substance: GLYCERIN
     Indication: PRODUCT USED FOR UNKNOWN INDICATION
     Route: 054
  3. SALAGEN [Concomitant]
     Active Substance: PILOCARPINE HYDROCHLORIDE
     Indication: PRODUCT USED FOR UNKNOWN INDICATION
  4. LAXATIVE [Concomitant]
     Active Substance: UNSPECIFIED INGREDIENT
     Indication: PRODUCT USED FOR UNKNOWN INDICATION
  5. CHOLESTYRAMINE. [Concomitant]
     Active Substance: CHOLESTYRAMINE
     Indication: BILE DUCT OBSTRUCTION
     Dosage: 1/2 PACKET DAILY AS NEEDED
     Route: 048
  6. SUCRALFATE. [Concomitant]
     Active Substance: SUCRALFATE
     Indication: GASTROINTESTINAL ULCER

REACTIONS (10)
  - Inappropriate schedule of drug administration [Unknown]
  - Bile output abnormal [Unknown]
  - Faeces discoloured [Recovered/Resolved]
  - Sjogren^s syndrome [Unknown]
  - Pain in extremity [Unknown]
  - Malaise [Unknown]
  - Sensory loss [Unknown]
  - Off label use [Unknown]
  - Diarrhoea [Unknown]
  - Abdominal pain upper [Recovering/Resolving]

NARRATIVE: CASE EVENT DATE: 20180610
